FAERS Safety Report 8605323-8 (Version None)
Quarter: 2012Q3

REPORT INFORMATION
  Report Type: 
  Country: None (occurrence: None)
  Receive Date: 20120820
  Receipt Date: 20120807
  Transmission Date: 20120928
  Serious: No
  Sender: FDA-Public Use
  Company Number: US-BAYER-2012-082501

PATIENT

DRUGS (2)
  1. ANTIBIOTICS [Concomitant]
     Dosage: UNK
     Dates: start: 20120806
  2. ALEVE (CAPLET) [Suspect]
     Indication: EAR PAIN
     Dosage: 2 DF, UNK
     Route: 048

REACTIONS (1)
  - EAR PAIN [None]
